FAERS Safety Report 5354621-2 (Version None)
Quarter: 2007Q2

REPORT INFORMATION
  Report Type: 
  Country: None (occurrence: None)
  Receive Date: 20070611
  Receipt Date: 20070524
  Transmission Date: 20071010
  Serious: Yes (Hospitalization)
  Sender: FDA-Public Use
  Company Number: DSM-2007-00241

PATIENT
  Age: 84 Year
  Sex: Female

DRUGS (2)
  1. BLINDED CS-866 (10 MILLIGRAM, TABLET) [Suspect]
     Indication: HYPERTENSION
     Dosage: BLINDED (10 MG, 1 IN 1 D), ORAL
     Route: 048
     Dates: start: 20070330, end: 20070101
  2. RAMIPRIL [Suspect]
     Indication: HYPERTENSION
     Dosage: BLINDED (2.5 MG, 1 IN 1 D), ORAL
     Route: 048
     Dates: start: 20070330, end: 20070101

REACTIONS (1)
  - CEREBRAL HAEMORRHAGE [None]
